FAERS Safety Report 6466074-1 (Version None)
Quarter: 2009Q4

REPORT INFORMATION
  Report Type: 
  Country: None (occurrence: None)
  Receive Date: 20091202
  Receipt Date: 20091124
  Transmission Date: 20100525
  Serious: Yes (Other)
  Sender: FDA-Public Use
  Company Number: US-JNJFOC-20091008237

PATIENT
  Sex: Female
  Weight: 93.9 kg

DRUGS (1)
  1. DURAGESIC-100 [Suspect]
     Indication: FIBROMYALGIA
     Route: 062

REACTIONS (4)
  - BRONCHITIS [None]
  - DRUG ADMINISTERED AT INAPPROPRIATE SITE [None]
  - EAR INFECTION [None]
  - PRURITUS [None]
